FAERS Safety Report 12738371 (Version 9)
Quarter: 2022Q2

REPORT INFORMATION
  Report Type: Spontaneous
  Country: US (occurrence: US)
  Receive Date: 20160913
  Receipt Date: 20220504
  Transmission Date: 20220721
  Serious: No
  Sender: FDA-Public Use
  Company Number: US-PFIZER INC-2016420456

PATIENT
  Age: 65 Year
  Sex: Male
  Weight: 104.3 kg

DRUGS (9)
  1. LYRICA [Suspect]
     Active Substance: PREGABALIN
     Indication: Neuropathy peripheral
     Dosage: 300 MG, 1X/DAY (IN THE EVENING)
     Route: 048
     Dates: start: 201605
  2. LYRICA [Suspect]
     Active Substance: PREGABALIN
     Indication: Back pain
     Dosage: 300 MG, 1X/DAY (IN THE EVENING)
     Route: 048
     Dates: start: 201605
  3. LYRICA [Suspect]
     Active Substance: PREGABALIN
     Indication: Lumbar radiculopathy
     Dosage: 100 MG, 3X/DAY
     Route: 048
     Dates: start: 2013
  4. LYRICA [Suspect]
     Active Substance: PREGABALIN
     Indication: Polyneuropathy
  5. LYRICA [Suspect]
     Active Substance: PREGABALIN
     Indication: Muscle spasms
  6. ASPIRIN [Concomitant]
     Active Substance: ASPIRIN
     Dosage: 81 MG, DAILY
     Route: 048
     Dates: start: 2014
  7. VITAMINS [Concomitant]
     Active Substance: VITAMINS
     Indication: Routine health maintenance
     Dosage: 1 DF, DAILY
     Route: 048
     Dates: start: 2006
  8. ACETAMINOPHEN\HYDROCODONE [Concomitant]
     Active Substance: ACETAMINOPHEN\HYDROCODONE
     Indication: Back pain
     Dosage: 1 DF (10/325 MG), 4X/DAY
     Route: 048
  9. LISINOPRIL [Concomitant]
     Active Substance: LISINOPRIL
     Dosage: 1 TABLET (20-25MG ), DAILY

REACTIONS (2)
  - Nasopharyngitis [Recovering/Resolving]
  - Insomnia [Recovering/Resolving]

NARRATIVE: CASE EVENT DATE: 20160801
